FAERS Safety Report 8889271 (Version 1)
Quarter: 2012Q4

REPORT INFORMATION
  Report Type: Report from Study
  Country: US (occurrence: US)
  Receive Date: 20121106
  Receipt Date: 20121106
  Transmission Date: 20130627
  Serious: Yes (Other)
  Sender: FDA-Public Use
  Company Number: US-ROCHE-1076565

PATIENT
  Age: 40 None
  Sex: Male
  Weight: 92.16 kg

DRUGS (4)
  1. CAPECITABINE [Suspect]
     Indication: SMALL INTESTINE CARCINOMA
     Route: 048
     Dates: start: 20120517, end: 201208
  2. CAPECITABINE [Suspect]
     Route: 048
     Dates: start: 20120910, end: 20120914
  3. IV INFUSION [Concomitant]
     Indication: SMALL INTESTINE CARCINOMA
     Dosage: dose unknown
     Route: 042
  4. IV INFUSION [Concomitant]
     Indication: SMALL INTESTINE CARCINOMA

REACTIONS (9)
  - Pericardial effusion [Unknown]
  - Diarrhoea [Not Recovered/Not Resolved]
  - Anorectal discomfort [Not Recovered/Not Resolved]
  - Fatigue [Not Recovered/Not Resolved]
  - Skin discolouration [Not Recovered/Not Resolved]
  - Skin discolouration [Not Recovered/Not Resolved]
  - Skin discolouration [Not Recovered/Not Resolved]
  - Pain [Not Recovered/Not Resolved]
  - Gait disturbance [Not Recovered/Not Resolved]
